FAERS Safety Report 10423163 (Version 1)
Quarter: 2014Q3

REPORT INFORMATION
  Report Type: Spontaneous
  Country: US (occurrence: None)
  Receive Date: 20140722
  Receipt Date: 20140722
  Transmission Date: 20150326
  Serious: No
  Sender: FDA-Public Use
  Company Number: 163-10004-14061035

PATIENT
  Age: 80 Year
  Sex: Male
  Weight: 61.24 kg

DRUGS (22)
  1. ALBUTEROL (SALBUTAMOL) (UNKNOWN) [Concomitant]
  2. PLAQUENIL (HYDROXYCHLOROQUINE PHOSPHATE) (UNKNOWN) [Concomitant]
  3. TRAMADOL (TRAMADOL) (UNKNOWN) [Concomitant]
  4. SULFASAZINE (UNKNOWN) [Concomitant]
  5. LLEVOTHYROXINE (LEVOTHYROXINE) (UNKNOWN) [Concomitant]
  6. TYLENOL (PARACETAMOL) (UNKNOWN) [Concomitant]
  7. AMIODARONE (AMIODARONE) (UNKNOWN) [Concomitant]
     Active Substance: AMIODARONE
  8. LORATADINE (LORATADINE) (UNKNOWN) [Concomitant]
  9. AMLODIPINE (AMLODIPINE) (UNKNOWN) [Concomitant]
  10. SIMVASTATIN (SIMVASTATIN) (UNKNOWN) [Concomitant]
     Active Substance: SIMVASTATIN
  11. CEPHALEXIN (CEFALEXIN) (UNKNOWN) [Concomitant]
  12. ALBUTEROL SULFATE (SALBUTAMIOL SULFATE) (UNKNOWN) [Concomitant]
  13. WARFARIN (WARFARIN) (UNKNOWN) [Concomitant]
  14. DIGOXIN (DIGOXIN) (UNKNOWN) (DIGOXIN) [Concomitant]
     Active Substance: DIGOXIN
  15. SPIRIVA [Concomitant]
     Active Substance: TIOTROPIUM BROMIDE MONOHYDRATE
  16. BUMETANIDE (BUMETANIDE) (UNKNOWN) [Concomitant]
  17. ENALAPRIL (ENALAPRIL) (UNKNOWN) [Concomitant]
  18. ANDROGEL (TESTOSTERONE) (UNKNOWN) [Concomitant]
  19. NIACIN (NICOTINIC ACID) (UNKNOWN) [Concomitant]
  20. OTEZLA [Suspect]
     Active Substance: APREMILAST
     Indication: PSORIATIC ARTHROPATHY
     Dosage: 2 IN 1 D, PO
     Route: 048
     Dates: start: 201405
  21. METOPROLOL (METOPROLOL) (UNKNOWN) [Concomitant]
  22. VITAMIN D (ERGOCALCIFEROL) (UNKNOWN) [Concomitant]

REACTIONS (1)
  - Diarrhoea [None]

NARRATIVE: CASE EVENT DATE: 20140602
